FAERS Safety Report 7593060-0 (Version None)
Quarter: 2011Q3

REPORT INFORMATION
  Report Type: 
  Country: None (occurrence: None)
  Receive Date: 20110706
  Receipt Date: 20110628
  Transmission Date: 20111222
  Serious: Yes (Other)
  Sender: FDA-Public Use
  Company Number: FR-ROCHE-786339

PATIENT
  Sex: Male

DRUGS (10)
  1. FOSFOCINE [Suspect]
     Route: 042
     Dates: start: 20110317, end: 20110320
  2. KEPPRA [Concomitant]
  3. VISIPAQUE [Suspect]
     Route: 042
     Dates: start: 20110316, end: 20110316
  4. CEFOTAXIME SODIUM [Suspect]
     Route: 042
     Dates: start: 20110317, end: 20110320
  5. GOMENOL [Concomitant]
  6. OMEPRAZOLE [Concomitant]
  7. VALIUM [Suspect]
     Dosage: ONE INTAKE
     Route: 042
     Dates: start: 20110320, end: 20110320
  8. IOMERON-150 [Suspect]
     Route: 065
     Dates: start: 20110318, end: 20110320
  9. ACETAMINOPHEN [Concomitant]
  10. METRONIDAZOLE [Suspect]
     Dosage: ONE INTAKE
     Route: 042
     Dates: start: 20110320, end: 20110320

REACTIONS (2)
  - RASH VESICULAR [None]
  - RASH PAPULAR [None]
